FAERS Safety Report 7105672-9 (Version None)
Quarter: 2010Q4

REPORT INFORMATION
  Report Type: 
  Country: None (occurrence: None)
  Receive Date: 20101110
  Receipt Date: 20101025
  Transmission Date: 20110411
  Serious: Yes (Life-Threatening)
  Sender: FDA-Public Use
  Company Number: DSA_44263_2010

PATIENT
  Age: 52 Year
  Sex: Male

DRUGS (5)
  1. HERBESSER (HERBESSER - DILTIAZEM HYDROCHLORIDE) 100 MG (NOT SPECIFIED) [Suspect]
     Indication: SUICIDE ATTEMPT
     Dosage: (5600 MG 1X, ORAL)
     Route: 048
     Dates: start: 20080901, end: 20080901
  2. AMLODIPINE BESILATE (AMLODIPINE BESILATE) 2.5 MG [Suspect]
     Indication: SUICIDE ATTEMPT
     Dosage: (280 MG 1X, ORAL)
     Route: 048
     Dates: start: 20080901, end: 20080901
  3. DOXAZOSIN MESILATE (DOXAZOSIN MESILATE) 1 MG [Suspect]
     Indication: SUICIDE ATTEMPT
     Dosage: (56 MG 1X, ORAL)
     Route: 048
     Dates: start: 20080901, end: 20080901
  4. LISINOPRIL [Suspect]
     Indication: SUICIDE ATTEMPT
     Dosage: (560 MG 1X, ORAL)
     Route: 048
     Dates: start: 20080901, end: 20080901
  5. PRAVASTATIN SODIUM [Suspect]
     Indication: SUICIDE ATTEMPT
     Dosage: (560 MG 1X, OTHER)
     Route: 050
     Dates: start: 20080901, end: 20080901

REACTIONS (13)
  - ANURIA [None]
  - ASCITES [None]
  - CARDIAC FAILURE [None]
  - DEPRESSED LEVEL OF CONSCIOUSNESS [None]
  - DRUG ABUSE [None]
  - GASTROINTESTINAL NECROSIS [None]
  - HYPOTENSION [None]
  - INTESTINAL ISCHAEMIA [None]
  - PNEUMONIA ASPIRATION [None]
  - RENAL FAILURE ACUTE [None]
  - RESPIRATORY FAILURE [None]
  - RHABDOMYOLYSIS [None]
  - VOMITING [None]
